FAERS Safety Report 8832458 (Version 1)
Quarter: 2012Q4

REPORT INFORMATION
  Report Type: Spontaneous
  Country: US (occurrence: None)
  Receive Date: 20121005
  Receipt Date: 20121005
  Transmission Date: 20130627
  Serious: No
  Sender: FDA-Public Use
  Company Number: None

PATIENT
  Age: 60 Year
  Sex: Male
  Weight: 107.7 kg

DRUGS (1)
  1. DOCETAXEL [Suspect]
     Indication: OROPHARYNGEAL SQUAMOUS CELL CARCINOMA
     Dosage: 167 MG ONCE IV
     Route: 042
     Dates: start: 20120823, end: 20120823

REACTIONS (10)
  - Flushing [None]
  - Chest discomfort [None]
  - Choking sensation [None]
  - Wheezing [None]
  - Dyspnoea [None]
  - Respiratory depression [None]
  - Restlessness [None]
  - Agitation [None]
  - Anaphylactic reaction [None]
  - Cough [None]
